FAERS Safety Report 9366712 (Version 1)
Quarter: 2013Q2

REPORT INFORMATION
  Report Type: Spontaneous
  Country: US (occurrence: US)
  Receive Date: 20130625
  Receipt Date: 20130625
  Transmission Date: 20140414
  Serious: Yes (Hospitalization, Other)
  Sender: FDA-Public Use
  Company Number: US-ROXANE LABORATORIES, INC.-2013-RO-01022RO

PATIENT
  Age: 21 Month
  Sex: 0

DRUGS (1)
  1. PROPRANOLOL [Suspect]
     Indication: TACHYARRHYTHMIA

REACTIONS (6)
  - Respiratory distress [Unknown]
  - Hypoglycaemia [Unknown]
  - Lethargy [Unknown]
  - Cough [Unknown]
  - Pyrexia [Unknown]
  - Irritability [Unknown]
